FAERS Safety Report 9519254 (Version 2)
Quarter: 2014Q1

REPORT INFORMATION
  Report Type: Spontaneous
  Country: US (occurrence: None)
  Receive Date: 20130305
  Receipt Date: 20140306
  Transmission Date: 20141002
  Serious: Yes (Other)
  Sender: FDA-Public Use
  Company Number: 163-21880-12110208

PATIENT
  Age: 77 Year
  Sex: Male

DRUGS (19)
  1. REVLIMID [Suspect]
     Indication: PLASMA CELL MYELOMA
     Dosage: 10 MG, 1 IN 1 D, PO
     Route: 048
     Dates: start: 200811
  2. BENEFIBER (CYAMOPSIS TETRAGONOLOBA GUM) (UNKNOWN) [Concomitant]
  3. MUPIROCIN (MUPIROCIN) [Concomitant]
  4. IMODIUM [Concomitant]
  5. MULTIVITAMINS (MULTIVITAMNS) [Concomitant]
  6. TESTOSTERONE (TESTOSTERONE) [Concomitant]
  7. GELATINE POWDER (GELATINE HYDROLYSATE) (POWDER)? [Concomitant]
  8. EPIPEN (EPINEPHRINE) (POWDER) [Concomitant]
  9. KYTRIL (GRANISETRON) (POWDER) [Concomitant]
  10. QUESTRAN (COLESTYRAMINE) (POWDER) [Concomitant]
  11. VELCADE (BORTEZOMIB) (POWDER) [Concomitant]
  12. SINGULAIR (MONTELUKAST SODIUM) (POWDER) [Concomitant]
  13. ALPHAGAN (BRIMONIDINE TARTRATE) (POWDER) [Concomitant]
  14. DEXAMETHASONE (DEXAMETHASONE) (POWDER) [Concomitant]
  15. PREVIDENT (SODIUM FLUORIDE) (POWDER) [Concomitant]
  16. POTASSIUM CHLORIDE (POTASSIUM CHLORIDE) (POWDER) [Concomitant]
  17. BENICAR (OLMESARTAN MEDOXOMIL) (POWDER) [Concomitant]
  18. XOPENEX (LEVOSALBUTAMOL) (POWDER) [Concomitant]
  19. ALVESCO (CICLESONIDE) (POWDER) [Concomitant]

REACTIONS (4)
  - Hypersensitivity [None]
  - Blood count abnormal [None]
  - Rash [None]
  - Adverse drug reaction [None]
